FAERS Safety Report 6240238-4 (Version None)
Quarter: 2009Q2

REPORT INFORMATION
  Report Type: 
  Country: None (occurrence: None)
  Receive Date: 20090623
  Receipt Date: 20080429
  Transmission Date: 20091009
  Serious: No
  Sender: FDA-Public Use
  Company Number: US-ASTRAZENECA-2008UW08699

PATIENT
  Age: 72 Year
  Sex: Male
  Weight: 87.1 kg

DRUGS (4)
  1. PULMICORT RESPULES [Suspect]
     Indication: CHRONIC OBSTRUCTIVE PULMONARY DISEASE
     Dosage: 0.5 MG/DL
     Route: 055
  2. LEXAPRO [Concomitant]
  3. ALTACE [Concomitant]
  4. ALBUTEROL [Concomitant]

REACTIONS (1)
  - ULCER [None]
